FAERS Safety Report 22600866 (Version 3)
Quarter: 2024Q1

REPORT INFORMATION
  Report Type: Spontaneous
  Country: US (occurrence: US)
  Receive Date: 20230614
  Receipt Date: 20240125
  Transmission Date: 20240410
  Serious: Yes (Hospitalization)
  Sender: FDA-Public Use
  Company Number: US-PFIZER INC-PV202300102824

PATIENT
  Age: 79 Year
  Sex: Female

DRUGS (2)
  1. XELJANZ [Suspect]
     Active Substance: TOFACITINIB CITRATE
     Indication: Rheumatoid arthritis
     Dosage: 1 TAB A DAY
     Dates: start: 2020
  2. XELJANZ [Suspect]
     Active Substance: TOFACITINIB CITRATE
     Indication: Osteoporosis

REACTIONS (2)
  - White blood cell disorder [Unknown]
  - Hypoacusis [Unknown]
